FAERS Safety Report 14583730 (Version 9)
Quarter: 2018Q4

REPORT INFORMATION
  Report Type: Spontaneous
  Country: US (occurrence: US)
  Receive Date: 20180228
  Receipt Date: 20181227
  Transmission Date: 20190204
  Serious: No
  Sender: FDA-Public Use
  Company Number: US-ACTELION-A-NJ2017-159560

PATIENT
  Age: 68 Year
  Sex: Female
  Weight: 88.89 kg

DRUGS (12)
  1. CALCIUM [Concomitant]
     Active Substance: CALCIUM
  2. BABY ASPIRIN [Concomitant]
     Active Substance: ASPIRIN
     Dosage: 81 MG, QD
  3. OPSUMIT [Suspect]
     Active Substance: MACITENTAN
     Indication: PULMONARY ARTERIAL HYPERTENSION
     Dosage: 10 MG, QD
     Route: 048
     Dates: start: 20170817
  4. SILDENAFIL. [Concomitant]
     Active Substance: SILDENAFIL
     Dosage: UNK
     Dates: start: 201802
  5. MICARDIS [Concomitant]
     Active Substance: TELMISARTAN
     Dosage: 40 MG, QD
  6. GLUCOSAMINE CHONDROITIN [Concomitant]
     Active Substance: CHONDROITIN SULFATE (BOVINE)\GLUCOSAMINE HYDROCHLORIDE
     Dosage: 1500 U, QD
  7. VITAMIN D [Concomitant]
     Active Substance: CHOLECALCIFEROL
     Dosage: 5000 MG, QD
  8. LEVOTHYROXINE. [Concomitant]
     Active Substance: LEVOTHYROXINE
     Dosage: 150 MCG, QD
  9. OPSUMIT [Suspect]
     Active Substance: MACITENTAN
     Dosage: 20 MG, QD
     Route: 048
     Dates: start: 2017, end: 20180211
  10. OMEPRAZOLE. [Concomitant]
     Active Substance: OMEPRAZOLE
  11. PROBIOTIC [Concomitant]
     Active Substance: PROBIOTICS NOS
     Dosage: UNK
  12. FENOFIBRATE. [Concomitant]
     Active Substance: FENOFIBRATE

REACTIONS (18)
  - Pulmonary arterial hypertension [Unknown]
  - Disease progression [Unknown]
  - Pulmonary hypertension [Not Recovered/Not Resolved]
  - Condition aggravated [Unknown]
  - Stress [Unknown]
  - Loss of personal independence in daily activities [Unknown]
  - Blood cholesterol abnormal [Not Recovered/Not Resolved]
  - Therapeutic response decreased [Unknown]
  - Bursitis [Unknown]
  - Oedema peripheral [Unknown]
  - Dyspnoea exertional [Unknown]
  - Product dose omission [Unknown]
  - High density lipoprotein decreased [Unknown]
  - Oxygen consumption increased [Unknown]
  - Peripheral swelling [Unknown]
  - General physical health deterioration [Unknown]
  - Dyspnoea [Unknown]
  - Anxiety [Unknown]

NARRATIVE: CASE EVENT DATE: 2018
